FAERS Safety Report 15741086 (Version 1)
Quarter: 2018Q4

REPORT INFORMATION
  Report Type: Spontaneous
  Country: US (occurrence: US)
  Receive Date: 20181204
  Receipt Date: 20181204
  Transmission Date: 20190205
  Serious: No
  Sender: FDA-Public Use
  Company Number: None

PATIENT
  Age: 4 Year
  Sex: Female

DRUGS (2)
  1. COMPLETE FORMULATION D 3000 [Concomitant]
  2. CREON [Suspect]
     Active Substance: PANCRELIPASE AMYLASE\PANCRELIPASE LIPASE\PANCRELIPASE PROTEASE
     Indication: CYSTIC FIBROSIS
     Dosage: 6000 U WITH EACH MEAL
     Route: 048
     Dates: start: 20140407

REACTIONS (1)
  - Lung infection [None]

NARRATIVE: CASE EVENT DATE: 20181113
